FAERS Safety Report 10757358 (Version 1)
Quarter: 2015Q1

REPORT INFORMATION
  Report Type: Spontaneous
  Country: US (occurrence: None)
  Receive Date: 20150130
  Receipt Date: 20150130
  Transmission Date: 20150721
  Serious: Yes (Other)
  Sender: FDA-Public Use
  Company Number: BB15-012-AE

PATIENT
  Age: 13 Year
  Sex: Female
  Weight: 38.1 kg

DRUGS (7)
  1. ATIVAN (GENERIC) [Concomitant]
     Active Substance: LORAZEPAM
  2. VITAMIN D [Concomitant]
     Active Substance: CHOLECALCIFEROL
  3. OXCARBAZEPINE. [Suspect]
     Active Substance: OXCARBAZEPINE
     Indication: SEIZURE
     Route: 048
     Dates: start: 201410, end: 2014
  4. ZANTAC [Concomitant]
     Active Substance: RANITIDINE HYDROCHLORIDE
  5. CLARITIN [Concomitant]
     Active Substance: LORATADINE
  6. BENADRYL [Concomitant]
     Active Substance: DIPHENHYDRAMINE HYDROCHLORIDE
  7. IBUPROFEN. [Concomitant]
     Active Substance: IBUPROFEN

REACTIONS (7)
  - Mydriasis [None]
  - Discomfort [None]
  - Hyperhidrosis [None]
  - Seizure [None]
  - Flushing [None]
  - Insomnia [None]
  - Tremor [None]

NARRATIVE: CASE EVENT DATE: 20150108
